FAERS Safety Report 6603245-5 (Version None)
Quarter: 2010Q1

REPORT INFORMATION
  Report Type: 
  Country: None (occurrence: None)
  Receive Date: 20100218
  Receipt Date: 20100205
  Transmission Date: 20100710
  Serious: Yes (Other)
  Sender: FDA-Public Use
  Company Number: 230233J09BRA

PATIENT
  Sex: Female

DRUGS (5)
  1. REBIF [Suspect]
     Indication: RELAPSING-REMITTING MULTIPLE SCLEROSIS
     Dosage: 44 MCG, 3 IN 1 WEEKS
     Dates: start: 20080730
  2. IBUPROFEN [Concomitant]
  3. DORFLEX (DORFLEX) [Concomitant]
  4. LEVOID (LEVOTHYROXINE SODIUM) [Concomitant]
  5. ACETAMINOPHEN [Concomitant]

REACTIONS (9)
  - ARTHRALGIA [None]
  - DIPLOPIA [None]
  - FATIGUE [None]
  - HEPATIC PAIN [None]
  - INJECTION SITE HAEMATOMA [None]
  - MYALGIA [None]
  - NAUSEA [None]
  - VOMITING [None]
  - YELLOW SKIN [None]
